FAERS Safety Report 10349176 (Version 1)
Quarter: 2014Q3

REPORT INFORMATION
  Report Type: Spontaneous
  Country: US (occurrence: US)
  Receive Date: 20140730
  Receipt Date: 20140730
  Transmission Date: 20150326
  Serious: No
  Sender: FDA-Public Use
  Company Number: US-009507513-1407USA004583

PATIENT
  Age: 79 Year
  Sex: Female

DRUGS (7)
  1. DULERA [Suspect]
     Active Substance: FORMOTEROL FUMARATE DIHYDRATE\MOMETASONE FUROATE
     Dosage: 100/5 MICROGRAM, 2 PUFFS IN AM AND PM
     Route: 055
     Dates: start: 2014, end: 20140708
  2. ZOCOR [Concomitant]
     Active Substance: SIMVASTATIN
  3. METOPROLOL [Concomitant]
     Active Substance: METOPROLOL
  4. DULERA [Suspect]
     Active Substance: FORMOTEROL FUMARATE DIHYDRATE\MOMETASONE FUROATE
     Indication: ASTHMA
     Dosage: 100/5 MICROGRAM, 2 PUFFS IN AM AND PM
     Route: 055
     Dates: start: 201405, end: 2014
  5. TRANXENE T-TAB [Concomitant]
     Active Substance: CLORAZEPATE DIPOTASSIUM
  6. EVISTA [Concomitant]
     Active Substance: RALOXIFENE HYDROCHLORIDE
  7. LYRICA [Concomitant]
     Active Substance: PREGABALIN

REACTIONS (4)
  - Angina bullosa haemorrhagica [Not Recovered/Not Resolved]
  - Pruritus [Not Recovered/Not Resolved]
  - Cough [Not Recovered/Not Resolved]
  - Injury [Not Recovered/Not Resolved]

NARRATIVE: CASE EVENT DATE: 201407
